FAERS Safety Report 15595990 (Version 1)
Quarter: 2018Q4

REPORT INFORMATION
  Report Type: Report from Study
  Country: DE (occurrence: DE)
  Receive Date: 20181107
  Receipt Date: 20181107
  Transmission Date: 20190205
  Serious: Yes (Other)
  Sender: FDA-Public Use
  Company Number: DE-ACCORD-092585

PATIENT
  Age: 46 Year
  Sex: Male
  Weight: 95 kg

DRUGS (3)
  1. ENBREL [Suspect]
     Active Substance: ETANERCEPT
     Indication: RHEUMATOID ARTHRITIS
     Dosage: DAILY DOSE: 50 MG MILLIGRAM(S) EVERY WEEK
     Route: 058
     Dates: start: 20161024
  2. PREDNISOLONE. [Concomitant]
     Active Substance: PREDNISOLONE
     Indication: RHEUMATOID ARTHRITIS
     Dosage: 5 MG, UNK
     Route: 058
     Dates: start: 20151029
  3. METHOTREXATE. [Suspect]
     Active Substance: METHOTREXATE
     Indication: RHEUMATOID ARTHRITIS
     Dosage: 20 MG, UNK
     Route: 058
     Dates: start: 20050607

REACTIONS (1)
  - Sinobronchitis [Recovered/Resolved]

NARRATIVE: CASE EVENT DATE: 20161124
